FAERS Safety Report 7757269-5 (Version None)
Quarter: 2011Q3

REPORT INFORMATION
  Report Type: 
  Country: None (occurrence: None)
  Receive Date: 20110916
  Receipt Date: 20110906
  Transmission Date: 20111222
  Serious: Yes (Hospitalization)
  Sender: FDA-Public Use
  Company Number: US-BAYER-201031475NA

PATIENT
  Age: 38 Year
  Sex: Female

DRUGS (2)
  1. MOTRIN [Concomitant]
     Route: 048
  2. YASMIN [Suspect]
     Indication: CONTRACEPTION
     Dosage: UNK
     Route: 048
     Dates: start: 20030401, end: 20051229

REACTIONS (1)
  - DEEP VEIN THROMBOSIS [None]
